FAERS Safety Report 15151950 (Version 1)
Quarter: 2018Q3

REPORT INFORMATION
  Report Type: Report from Study
  Country: DE (occurrence: DE)
  Receive Date: 20180717
  Receipt Date: 20180717
  Transmission Date: 20181010
  Serious: Yes (Death, Hospitalization)
  Sender: FDA-Public Use
  Company Number: DE-TEVA-2018-DE-926090

PATIENT
  Age: 75 Year
  Sex: Female
  Weight: 70 kg

DRUGS (19)
  1. IRINOTECAN [Suspect]
     Active Substance: IRINOTECAN
     Indication: COLORECTAL CANCER METASTATIC
     Route: 042
     Dates: start: 20121211, end: 20130409
  2. HUMALOG [Concomitant]
     Active Substance: INSULIN LISPRO
     Indication: DIABETES MELLITUS
     Route: 065
  3. FLUOROURACIL. [Suspect]
     Active Substance: FLUOROURACIL
     Route: 041
     Dates: start: 20121211, end: 20130410
  4. METRONIDAZOL [Concomitant]
     Active Substance: METRONIDAZOLE
     Indication: DIVERTICULUM INTESTINAL
     Route: 065
     Dates: start: 20130121, end: 20130129
  5. MUCOFALK [Concomitant]
     Active Substance: HERBALS\PLANTAGO OVATA LEAF
     Indication: DIVERTICULUM INTESTINAL
     Route: 048
     Dates: start: 20130121, end: 20130129
  6. LOPERAMID [Concomitant]
     Active Substance: LOPERAMIDE
     Indication: DIARRHOEA
     Route: 065
     Dates: start: 20130117, end: 20130121
  7. BISOPROLOL [Concomitant]
     Active Substance: BISOPROLOL
     Indication: HYPERTENSION
     Dosage: 2.5 MILLIGRAM DAILY;
     Route: 048
  8. CEFUROXIM [Concomitant]
     Active Substance: CEFUROXIME
     Indication: DIVERTICULUM INTESTINAL
     Route: 065
     Dates: start: 20130121, end: 20130129
  9. SAROTEN [Concomitant]
     Active Substance: AMITRIPTYLINE
     Indication: DEPRESSION
     Dosage: 5 MILLIGRAM DAILY;
     Route: 048
  10. FLUOROURACIL. [Suspect]
     Active Substance: FLUOROURACIL
     Indication: COLORECTAL CANCER METASTATIC
     Route: 040
     Dates: start: 20121211, end: 20130409
  11. FOLINIC ACID [Suspect]
     Active Substance: LEUCOVORIN
     Indication: COLORECTAL CANCER METASTATIC
     Route: 042
     Dates: start: 20121211, end: 20130409
  12. INSULIN [Concomitant]
     Active Substance: INSULIN NOS
     Indication: DIABETES MELLITUS
     Dosage: 8 IU DAILY?RAPID INSULIN
     Route: 058
  13. AMLODIPIN [Concomitant]
     Active Substance: AMLODIPINE BESYLATE
     Indication: HYPERTENSION
     Dosage: 5 MILLIGRAM DAILY;
     Route: 048
  14. BEVACIZUMAB. [Suspect]
     Active Substance: BEVACIZUMAB
     Indication: COLORECTAL CANCER METASTATIC
     Dosage: 350 MG
     Route: 042
     Dates: start: 20121211, end: 20130409
  15. MCP [Concomitant]
     Active Substance: METOCLOPRAMIDE HYDROCHLORIDE
     Indication: NAUSEA
     Route: 042
     Dates: start: 20130121, end: 20130121
  16. GLIBENCLAMID [Concomitant]
     Active Substance: GLYBURIDE
     Indication: DIABETES MELLITUS
     Dosage: 3.5 MILLIGRAM DAILY;
     Route: 048
  17. SAROTEN [Concomitant]
     Active Substance: AMITRIPTYLINE
     Dosage: 1000 MILLIGRAM DAILY;
     Route: 048
  18. DICLOPHENAC [Concomitant]
     Active Substance: DICLOFENAC SODIUM
     Indication: HEPATIC PAIN
     Route: 065
  19. ASPIRIN. [Concomitant]
     Active Substance: ASPIRIN
     Dosage: 100 MILLIGRAM DAILY;
     Route: 048

REACTIONS (9)
  - Tachycardia [Recovered/Resolved]
  - Depression [Recovered/Resolved]
  - Anaemia of malignant disease [Recovered/Resolved]
  - Death [Fatal]
  - C-reactive protein increased [Recovered/Resolved]
  - Pneumonia [Recovered/Resolved with Sequelae]
  - Hyperventilation [Recovered/Resolved]
  - Pyrexia [Recovered/Resolved]
  - Oedema peripheral [Recovered/Resolved]

NARRATIVE: CASE EVENT DATE: 20130516
